FAERS Safety Report 5122437-8 (Version None)
Quarter: 2006Q4

REPORT INFORMATION
  Report Type: 
  Country: None (occurrence: None)
  Receive Date: 20061004
  Receipt Date: 20060921
  Transmission Date: 20070319
  Serious: Yes (Hospitalization)
  Sender: FDA-Public Use
  Company Number: 2006-148109-NL

PATIENT
  Age: 22 Year
  Sex: Female
  Weight: 73.9 kg

DRUGS (2)
  1. NUVARING [Suspect]
     Indication: CONTRACEPTION
     Dosage: VAGINAL, 3 WEEKS IN/ 1 WEEK OUT
     Route: 067
     Dates: start: 20050401
  2. NUVARING [Suspect]
     Indication: MENSTRUATION IRREGULAR
     Dosage: VAGINAL, 3 WEEKS IN/ 1 WEEK OUT
     Route: 067
     Dates: start: 20050401

REACTIONS (2)
  - HYPERSENSITIVITY [None]
  - URTICARIA [None]
